FAERS Safety Report 4992598-X (Version None)
Quarter: 2006Q1

REPORT INFORMATION
  Report Type: 
  Country: None (occurrence: None)
  Receive Date: 20060313
  Receipt Date: 20051218
  Transmission Date: 20060701
  Serious: Yes (Other)
  Sender: FDA-Public Use
  Company Number: PHEH2005US13674

PATIENT
  Age: 53 Year
  Sex: Female

DRUGS (1)
  1. TRILEPTAL [Suspect]
     Indication: CONVULSION
     Dosage: 450 MG, QD, ORAL
     Route: 048
     Dates: start: 20050101

REACTIONS (6)
  - AMNESIA [None]
  - BALANCE DISORDER [None]
  - DEPRESSION [None]
  - FACE INJURY [None]
  - FALL [None]
  - FATIGUE [None]
